APPROVED DRUG PRODUCT: AMMONIA N 13
Active Ingredient: AMMONIA N-13
Strength: 22.5mCi-225mCi/6ML (3.75-37.5mCi/ML)
Dosage Form/Route: INJECTABLE;INTRAVENOUS
Application: A210524 | Product #001 | TE Code: AP
Applicant: IONETIX CORP
Approved: Dec 21, 2018 | RLD: No | RS: No | Type: RX